FAERS Safety Report 23256986 (Version 1)
Quarter: 2023Q4

REPORT INFORMATION
  Report Type: Spontaneous
  Country: US (occurrence: US)
  Receive Date: 20231204
  Receipt Date: 20231204
  Transmission Date: 20240109
  Serious: Yes (Other)
  Sender: FDA-Public Use
  Company Number: US-STRIDES ARCOLAB LIMITED-2023SP017913

PATIENT

DRUGS (7)
  1. ETOPOSIDE [Suspect]
     Active Substance: ETOPOSIDE
     Indication: Lymphoma
     Dosage: 100 MILLIGRAM/SQ. METER, ON DAY 2-4 OF EVERY 28 DAYS CYCLE. PART OF MODIFIED SMILE REGIMEN
     Route: 065
  2. METHOTREXATE [Suspect]
     Active Substance: METHOTREXATE
     Indication: Lymphoma
     Dosage: 40 MILLIGRAM, ON DAY 1 OF EVERY 28 DAYS CYCLE. PART OF MODIFIED SMILE REGIMEN
     Route: 065
  3. DEXAMETHASONE [Suspect]
     Active Substance: DEXAMETHASONE
     Indication: Lymphoma
     Dosage: UNK, CYCLICAL, DAILY ON DAY 2, 3 AND 4 OF EVERY 28 DAYS CYCLE. PART OF MODIFIED SMILE REGIMEN
     Route: 065
  4. IFOSFAMIDE [Suspect]
     Active Substance: IFOSFAMIDE
     Indication: Lymphoma
     Dosage: 1500 MILLIGRAM/SQ. METER, EVERY 28 DAYS CYCLE. PART OF MODIFIED SMILE REGIMEN
     Route: 065
  5. PEGASPARGASE [Suspect]
     Active Substance: PEGASPARGASE
     Indication: Lymphoma
     Dosage: 2500 UNITS/M2 ON DAY 8 FOR EVERY 28 DAYS
     Route: 042
  6. MESNA [Concomitant]
     Active Substance: MESNA
     Indication: Chemotherapy side effect prophylaxis
     Dosage: UNK
     Route: 065
  7. LEUCOVORIN [Concomitant]
     Active Substance: LEUCOVORIN\LEUCOVORIN CALCIUM
     Indication: Chemotherapy side effect prophylaxis
     Dosage: UNK
     Route: 065

REACTIONS (2)
  - Pancreatitis [Unknown]
  - Toxicity to various agents [Unknown]
